FAERS Safety Report 24792056 (Version 2)
Quarter: 2025Q1

REPORT INFORMATION
  Report Type: Report from Study
  Country: US (occurrence: US)
  Receive Date: 20241231
  Receipt Date: 20250118
  Transmission Date: 20250408
  Serious: Yes (Hospitalization, Other)
  Sender: ABBVIE
  Company Number: US-ABBVIE-6066983

PATIENT
  Age: 30 Year
  Sex: Male

DRUGS (1)
  1. SKYRIZI [Suspect]
     Active Substance: RISANKIZUMAB-RZAA
     Indication: Crohn^s disease
     Route: 042
     Dates: start: 20241009

REACTIONS (4)
  - Intestinal obstruction [Not Recovered/Not Resolved]
  - Drug ineffective [Unknown]
  - Pyrexia [Unknown]
  - Intussusception [Not Recovered/Not Resolved]

NARRATIVE: CASE EVENT DATE: 20240101
